FAERS Safety Report 5142408-5 (Version None)
Quarter: 2006Q4

REPORT INFORMATION
  Report Type: 
  Country: None (occurrence: None)
  Receive Date: 20061030
  Receipt Date: 20061030
  Transmission Date: 20070319
  Serious: Yes (Life-Threatening)
  Sender: FDA-Public Use
  Company Number: None

PATIENT
  Age: 74 Year
  Sex: Female
  Weight: 57 kg

DRUGS (5)
  1. PLAVIX [Suspect]
     Indication: ATRIAL FIBRILLATION
     Dosage: 75MG  Q OTHER DAY  PO
     Route: 048
     Dates: start: 20060920, end: 20061006
  2. PLAVIX [Suspect]
     Indication: CEREBROVASCULAR ACCIDENT
     Dosage: 75MG  Q OTHER DAY  PO
     Route: 048
     Dates: start: 20060920, end: 20061006
  3. PLAVIX [Suspect]
     Indication: ATRIAL FIBRILLATION
     Dosage: 75MG  Q OTHER DAY  PO
     Route: 048
     Dates: start: 20061009
  4. PLAVIX [Suspect]
     Indication: CEREBROVASCULAR ACCIDENT
     Dosage: 75MG  Q OTHER DAY  PO
     Route: 048
     Dates: start: 20061009
  5. VANCOMYCIN [Suspect]
     Indication: CLOSTRIDIUM DIFFICILE COLITIS
     Dosage: 250MG LIQUID  Q 6 HRS  PO
     Route: 048
     Dates: start: 20060922, end: 20061006

REACTIONS (5)
  - HAEMATOCRIT DECREASED [None]
  - HAEMOGLOBIN DECREASED [None]
  - LEUKOPENIA [None]
  - NEUTROPENIA [None]
  - PLATELET COUNT DECREASED [None]
